FAERS Safety Report 7201842-X (Version None)
Quarter: 2010Q4

REPORT INFORMATION
  Report Type: 
  Country: None (occurrence: None)
  Receive Date: 20101229
  Receipt Date: 20101217
  Transmission Date: 20110411
  Serious: Yes (Other)
  Sender: FDA-Public Use
  Company Number: MX-JNJFOC-20101108920

PATIENT
  Age: 22 Month
  Sex: Male

DRUGS (2)
  1. CONCENTRATED MOTRIN INFANTS DROPS [Suspect]
     Route: 048
  2. CONCENTRATED MOTRIN INFANTS DROPS [Suspect]
     Indication: PYREXIA
     Dosage: 2 DAYS PER MONTH
     Route: 048

REACTIONS (2)
  - DEAFNESS [None]
  - PRURITUS [None]
